FAERS Safety Report 10620258 (Version 3)
Quarter: 2015Q3

REPORT INFORMATION
  Report Type: Spontaneous
  Country: IE (occurrence: None)
  Receive Date: 20141128
  Receipt Date: 20150715
  Transmission Date: 20151125
  Serious: Yes (Hospitalization, Other)
  Sender: FDA-Public Use
  Company Number: ADR-2014-02255

PATIENT
  Age: 28 Year
  Sex: Female

DRUGS (3)
  1. METHYLPREDNISOLONE. [Suspect]
     Active Substance: METHYLPREDNISOLONE
     Indication: PRODUCT USED FOR UNKNOWN INDICATION
     Route: 042
  2. BACLOFEN. [Suspect]
     Active Substance: BACLOFEN
     Indication: PAIN
  3. GILENYA [Suspect]
     Active Substance: FINGOLIMOD HYDROCHLORIDE
     Indication: MULTIPLE SCLEROSIS
     Route: 048
     Dates: start: 20130919

REACTIONS (11)
  - Hemiplegia [None]
  - Orthostatic hypotension [None]
  - Epistaxis [None]
  - Malaise [None]
  - Headache [None]
  - Productive cough [None]
  - Central nervous system lesion [None]
  - Muscular weakness [None]
  - Circulatory collapse [None]
  - Loss of consciousness [None]
  - Viral infection [None]
